FAERS Safety Report 25452080 (Version 1)
Quarter: 2025Q2

REPORT INFORMATION
  Report Type: Spontaneous
  Country: US (occurrence: US)
  Receive Date: 20250618
  Receipt Date: 20250618
  Transmission Date: 20250716
  Serious: Yes (Other)
  Sender: AMERICAN REGENT
  Company Number: US-AMERICAN REGENT INC-2025002393

PATIENT
  Sex: Male

DRUGS (20)
  1. VASOPRESSIN [Suspect]
     Active Substance: VASOPRESSIN
     Indication: Distributive shock
     Route: 042
  2. VASOPRESSIN [Suspect]
     Active Substance: VASOPRESSIN
     Indication: Hypotension
     Route: 042
  3. VASOPRESSIN [Suspect]
     Active Substance: VASOPRESSIN
     Route: 042
  4. EPINEPHRINE [Suspect]
     Active Substance: EPINEPHRINE
     Indication: Distributive shock
     Route: 042
  5. EPINEPHRINE [Suspect]
     Active Substance: EPINEPHRINE
     Indication: Hypotension
     Route: 042
  6. EPINEPHRINE [Suspect]
     Active Substance: EPINEPHRINE
     Route: 042
  7. NOREPINEPHRINE [Suspect]
     Active Substance: NOREPINEPHRINE
     Indication: Distributive shock
     Route: 042
  8. NOREPINEPHRINE [Suspect]
     Active Substance: NOREPINEPHRINE
     Indication: Hypotension
     Route: 042
  9. NOREPINEPHRINE [Suspect]
     Active Substance: NOREPINEPHRINE
     Route: 042
  10. PHENYLEPHRINE [Suspect]
     Active Substance: PHENYLEPHRINE
     Indication: Distributive shock
     Route: 042
  11. PHENYLEPHRINE [Suspect]
     Active Substance: PHENYLEPHRINE
     Indication: Hypotension
     Route: 042
  12. PHENYLEPHRINE [Suspect]
     Active Substance: PHENYLEPHRINE
     Route: 042
  13. SODIUM CHLORIDE [Suspect]
     Active Substance: SODIUM CHLORIDE
     Indication: Hypotension
     Route: 065
  14. MIDAZOLAM [Concomitant]
     Active Substance: MIDAZOLAM
     Indication: Agitation
     Route: 065
  15. HALOPERIDOL [Concomitant]
     Active Substance: HALOPERIDOL
     Indication: Agitation
     Route: 065
  16. HALOPERIDOL [Concomitant]
     Active Substance: HALOPERIDOL
     Route: 065
  17. VANCOMYCIN [Concomitant]
     Active Substance: VANCOMYCIN
     Indication: Sepsis
     Route: 065
  18. VANCOMYCIN [Concomitant]
     Active Substance: VANCOMYCIN
     Indication: Antibiotic therapy
  19. CEFEPIME [Concomitant]
     Active Substance: CEFEPIME HYDROCHLORIDE
     Indication: Sepsis
     Route: 065
  20. CEFEPIME [Concomitant]
     Active Substance: CEFEPIME HYDROCHLORIDE
     Indication: Antibiotic therapy

REACTIONS (4)
  - Drug ineffective [Recovered/Resolved]
  - Distributive shock [Recovered/Resolved]
  - Drug ineffective for unapproved indication [Recovered/Resolved]
  - Product use in unapproved indication [Unknown]
